FAERS Safety Report 24159332 (Version 1)
Quarter: 2024Q3

REPORT INFORMATION
  Report Type: Report from Study
  Country: UY (occurrence: UY)
  Receive Date: 20240731
  Receipt Date: 20240731
  Transmission Date: 20241017
  Serious: Yes (Other)
  Sender: JOHNSON AND JOHNSON
  Company Number: UY-JNJFOC-20240773945

PATIENT
  Age: 72 Year
  Sex: Male
  Weight: 83 kg

DRUGS (1)
  1. SIMPONI [Suspect]
     Active Substance: GOLIMUMAB
     Indication: Axial spondyloarthritis
     Route: 058
     Dates: start: 20230725

REACTIONS (3)
  - Pneumonia [Recovered/Resolved]
  - Hepatitis [Unknown]
  - Influenza [Unknown]

NARRATIVE: CASE EVENT DATE: 20240501
